FAERS Safety Report 5467943-1 (Version None)
Quarter: 2007Q3

REPORT INFORMATION
  Report Type: 
  Country: None (occurrence: None)
  Receive Date: 20070924
  Receipt Date: 20070924
  Transmission Date: 20080115
  Serious: Yes (Other)
  Sender: FDA-Public Use
  Company Number: None

PATIENT
  Age: 37 Year
  Sex: Female

DRUGS (1)
  1. TUBERCULIN PURIFIED PROTEIN DERVIATIVE [Suspect]
     Dosage: IN LEFT FOREARM
     Dates: start: 20070730

REACTIONS (4)
  - INFLUENZA [None]
  - MALAISE [None]
  - NAUSEA [None]
  - PHARYNGOLARYNGEAL PAIN [None]
